FAERS Safety Report 5771401-4 (Version None)
Quarter: 2008Q2

REPORT INFORMATION
  Report Type: 
  Country: None (occurrence: None)
  Receive Date: 20080610
  Receipt Date: 20080528
  Transmission Date: 20081010
  Serious: Yes (Death)
  Sender: FDA-Public Use
  Company Number: 2008AL006044

PATIENT
  Age: 88 Year
  Sex: Female

DRUGS (4)
  1. DIGOXIN [Suspect]
     Indication: DYSPNOEA
     Dosage: 0.125MG DAILY PO
     Route: 048
     Dates: start: 20071108, end: 20080310
  2. HYDROCODEINE [Concomitant]
  3. HYDROMORPHINE [Concomitant]
  4. FUROSEMIDE [Concomitant]

REACTIONS (4)
  - ASTHENIA [None]
  - CONVULSION [None]
  - FLUID RETENTION [None]
  - PAIN [None]
